FAERS Safety Report 22093571 (Version 1)
Quarter: 2023Q1

REPORT INFORMATION
  Report Type: Spontaneous
  Country: US (occurrence: US)
  Receive Date: 20230314
  Receipt Date: 20230314
  Transmission Date: 20230417
  Serious: Yes (Other)
  Sender: FDA-Public Use
  Company Number: US-AMERICAN REGENT INC-2023000616

PATIENT
  Sex: Female

DRUGS (2)
  1. VENOFER [Suspect]
     Active Substance: IRON SUCROSE
     Indication: Iron deficiency anaemia
     Dosage: UNK (HAS BEEN TAKING VENOFER ^A LONG TIME, FOR 20 YEARS^)
     Route: 042
  2. VENOFER [Suspect]
     Active Substance: IRON SUCROSE
     Dosage: 200 MILLIGRAM, SINGLE
     Route: 042
     Dates: start: 20230306, end: 20230306

REACTIONS (5)
  - Bone pain [Not Recovered/Not Resolved]
  - Back pain [Not Recovered/Not Resolved]
  - Flank pain [Not Recovered/Not Resolved]
  - Product use in unapproved indication [Unknown]
  - Off label use [Unknown]

NARRATIVE: CASE EVENT DATE: 20230306
